FAERS Safety Report 9630671 (Version 3)
Quarter: 2013Q4

REPORT INFORMATION
  Report Type: Spontaneous
  Country: US (occurrence: None)
  Receive Date: 20131016
  Receipt Date: 20131220
  Transmission Date: 20140711
  Serious: Yes (Other)
  Sender: FDA-Public Use
  Company Number: SYM-2013-11364

PATIENT
  Sex: Female

DRUGS (5)
  1. ZYBAN [Suspect]
     Indication: SMOKING CESSATION THERAPY
     Route: 048
     Dates: start: 1995, end: 1995
  2. DULOXETINE HYDROCHLORIDE [Concomitant]
  3. ALPRAZOLAM [Concomitant]
  4. DICYCLOMINE HYDROCHLORIDE [Concomitant]
  5. ZOLOFT [Suspect]
     Indication: BIPOLAR DISORDER
     Route: 048
     Dates: start: 1995, end: 200502

REACTIONS (3)
  - Grand mal convulsion [None]
  - Fall [None]
  - Drug interaction [None]
